FAERS Safety Report 9586594 (Version 2)
Quarter: 2013Q4

REPORT INFORMATION
  Report Type: Spontaneous
  Country: FR (occurrence: FR)
  Receive Date: 20131003
  Receipt Date: 20131206
  Transmission Date: 20140711
  Serious: Yes (Life-Threatening)
  Sender: FDA-Public Use
  Company Number: FR-PFIZER INC-2013277673

PATIENT
  Age: 22 Year
  Sex: Male

DRUGS (6)
  1. ADVIL [Suspect]
     Indication: PYREXIA
     Dosage: THREE TABLETS/DAY
     Route: 048
     Dates: start: 20130824, end: 201309
  2. ADVIL [Suspect]
     Indication: OROPHARYNGEAL PAIN
  3. ADVIL [Suspect]
     Indication: DYSPNOEA
  4. AMOXICILLIN [Concomitant]
     Indication: PYREXIA
     Dosage: UNK
     Dates: start: 20130827, end: 20130903
  5. AMOXICILLIN [Concomitant]
     Indication: OROPHARYNGEAL PAIN
  6. AMOXICILLIN [Concomitant]
     Indication: DYSPNOEA

REACTIONS (2)
  - Lemierre syndrome [Recovered/Resolved]
  - Abdominal pain [Unknown]
